FAERS Safety Report 7784491-4 (Version None)
Quarter: 2011Q3

REPORT INFORMATION
  Report Type: 
  Country: None (occurrence: None)
  Receive Date: 20110928
  Receipt Date: 20110923
  Transmission Date: 20111222
  Serious: Yes (Death, Hospitalization, Other)
  Sender: FDA-Public Use
  Company Number: PHHY2011ES85271

PATIENT
  Age: 65 Year
  Sex: Male

DRUGS (5)
  1. CYCLOPHOSPHAMIDE [Suspect]
     Indication: CRYOGLOBULINAEMIA
  2. AZATHIOPRINE [Suspect]
     Indication: CRYOGLOBULINAEMIA
  3. MYCOPHENOLATE MOFETIL [Suspect]
     Indication: CRYOGLOBULINAEMIA
  4. METHOTREXATE [Suspect]
     Indication: CRYOGLOBULINAEMIA
  5. CORTICOSTEROIDS [Suspect]
     Indication: CRYOGLOBULINAEMIA

REACTIONS (15)
  - SEPSIS [None]
  - HYPOTENSION [None]
  - IMMUNOSUPPRESSION [None]
  - PAIN [None]
  - GENERAL PHYSICAL CONDITION ABNORMAL [None]
  - LEUKOCYTOSIS [None]
  - RESPIRATORY DISTRESS [None]
  - ANTIBIOTIC RESISTANT STAPHYLOCOCCUS TEST POSITIVE [None]
  - PYREXIA [None]
  - SKIN PLAQUE [None]
  - ULCER HAEMORRHAGE [None]
  - ISCHAEMIC STROKE [None]
  - RENAL FAILURE [None]
  - ERYTHEMA [None]
  - SKIN HYPOPIGMENTATION [None]
